FAERS Safety Report 5956283-X (Version None)
Quarter: 2008Q4

REPORT INFORMATION
  Report Type: 
  Country: None (occurrence: None)
  Receive Date: 20081118
  Receipt Date: 20081113
  Transmission Date: 20090506
  Serious: Yes (Death, Hospitalization, Other)
  Sender: FDA-Public Use
  Company Number: DK-ELI_LILLY_AND_COMPANY-DK200804006393

PATIENT
  Sex: Female
  Weight: 55 kg

DRUGS (5)
  1. TERIPARATIDE [Suspect]
     Indication: OSTEOPOROSIS
     Dosage: 20 UG, DAILY (1/D)
     Route: 058
     Dates: start: 20080118, end: 20080301
  2. PAMOL [Concomitant]
     Indication: PAIN
     Dosage: 1 G, EACH EVENING
     Route: 065
  3. CEFUROXIME [Concomitant]
     Indication: CYSTITIS
     Dosage: 1500 MG, 3/D
     Route: 065
     Dates: start: 20080329, end: 20080404
  4. DIAZEPAM [Concomitant]
     Indication: CONVULSION
     Dosage: 10 MG, EACH EVENING
     Route: 065
     Dates: start: 20080403
  5. MORFIN [Concomitant]
     Indication: PAIN
     Dosage: 20 MG, EACH EVENING
     Route: 065
     Dates: start: 20080403

REACTIONS (3)
  - CEREBRAL HAEMORRHAGE [None]
  - DEEP VEIN THROMBOSIS [None]
  - PULMONARY EMBOLISM [None]
